FAERS Safety Report 7180456-4 (Version None)
Quarter: 2010Q4

REPORT INFORMATION
  Report Type: 
  Country: None (occurrence: None)
  Receive Date: 20101221
  Receipt Date: 20101217
  Transmission Date: 20110411
  Serious: Yes (Death)
  Sender: FDA-Public Use
  Company Number: US-ABBOTT-10P-163-0692146-00

PATIENT
  Sex: Female

DRUGS (2)
  1. HUMIRA [Suspect]
     Indication: RHEUMATOID ARTHRITIS
     Dates: end: 20071201
  2. HUMIRA [Suspect]
     Indication: SJOGREN'S SYNDROME

REACTIONS (3)
  - CEREBRAL HAEMORRHAGE [None]
  - CONFUSIONAL STATE [None]
  - TRANSIENT ISCHAEMIC ATTACK [None]
